FAERS Safety Report 4447973-9 (Version None)
Quarter: 2004Q3

REPORT INFORMATION
  Report Type: 
  Country: None (occurrence: None)
  Receive Date: 20040813
  Receipt Date: 20030618
  Transmission Date: 20050211
  Serious: Yes (Other)
  Sender: FDA-Public Use
  Company Number: PHEH2003US05066

PATIENT
  Age: 80 Year
  Sex: Female

DRUGS (8)
  1. VISUDYNE [Suspect]
     Indication: MACULAR DEGENERATION
     Dates: start: 20030617, end: 20030617
  2. HYZAAR [Concomitant]
  3. TENORMIN [Concomitant]
  4. SYNTHROID [Concomitant]
  5. XANAX [Concomitant]
  6. DARVOCET-N 100 [Concomitant]
  7. ASPIRIN [Concomitant]
  8. MULTIVITAMIN [Concomitant]

REACTIONS (1)
  - VISUAL ACUITY REDUCED [None]
